FAERS Safety Report 7535334-5 (Version None)
Quarter: 2011Q2

REPORT INFORMATION
  Report Type: 
  Country: None (occurrence: None)
  Receive Date: 20110609
  Receipt Date: 20080327
  Transmission Date: 20111010
  Serious: Yes (Other)
  Sender: FDA-Public Use
  Company Number: PHHY2007AT00988

PATIENT
  Sex: Male
  Weight: 55 kg

DRUGS (3)
  1. SANDIMMUNE [Suspect]
     Dosage: 2 X 100 MG, QD
     Dates: start: 19941219
  2. CERTICAN [Suspect]
     Indication: RENAL TRANSPLANT
     Dosage: 2X0.5 MG DAILY
     Dates: start: 20061005
  3. SANDIMMUNE [Suspect]
     Dosage: 2 X50 MG, QD
     Dates: start: 20071005

REACTIONS (9)
  - BLOOD CREATININE INCREASED [None]
  - BLOOD CHOLESTEROL INCREASED [None]
  - DISEASE PROGRESSION [None]
  - LOW DENSITY LIPOPROTEIN INCREASED [None]
  - BLOOD PARATHYROID HORMONE INCREASED [None]
  - BLOOD ALKALINE PHOSPHATASE INCREASED [None]
  - KIDNEY TRANSPLANT REJECTION [None]
  - DRUG INEFFECTIVE [None]
  - COMPLICATIONS OF TRANSPLANTED KIDNEY [None]
